FAERS Safety Report 9482140 (Version 2)
Quarter: 2013Q4

REPORT INFORMATION
  Report Type: Report from Study
  Country: FR (occurrence: FR)
  Receive Date: 20130828
  Receipt Date: 20131104
  Transmission Date: 20140711
  Serious: Yes (Death, Hospitalization, Other)
  Sender: FDA-Public Use
  Company Number: FR-JNJFOC-20130811248

PATIENT
  Sex: Female

DRUGS (2)
  1. DOXORUBICIN HYDROCHLORIDE [Suspect]
     Indication: BREAST CANCER METASTATIC
     Route: 042
  2. PYRIDOXINE [Concomitant]
     Route: 065

REACTIONS (25)
  - Death [Fatal]
  - Breast cancer metastatic [Fatal]
  - Pathological fracture [Unknown]
  - Investigation [Unknown]
  - Thrombocytopenia [Unknown]
  - Neutrophil count abnormal [Unknown]
  - Neutropenia [Unknown]
  - White blood cell disorder [Unknown]
  - Lymphopenia [Unknown]
  - Palmar-plantar erythrodysaesthesia syndrome [Unknown]
  - Infection [Unknown]
  - Fatigue [Unknown]
  - Pain [Unknown]
  - Decreased appetite [Unknown]
  - Rash [Unknown]
  - Skin reaction [Unknown]
  - Diarrhoea [Unknown]
  - Vomiting [Unknown]
  - Alopecia [Unknown]
  - Constipation [Unknown]
  - Nausea [Unknown]
  - Stomatitis [Unknown]
  - Haemoglobin abnormal [Unknown]
  - Arrhythmia [Unknown]
  - Tachycardia [Unknown]
